FAERS Safety Report 6981585-8 (Version None)
Quarter: 2010Q3

REPORT INFORMATION
  Report Type: 
  Country: None (occurrence: None)
  Receive Date: 20100825
  Receipt Date: 20100809
  Transmission Date: 20110219
  Serious: No
  Sender: FDA-Public Use
  Company Number: 201007026

PATIENT
  Age: 71 Year
  Sex: Female

DRUGS (2)
  1. XIAFLEX [Suspect]
     Indication: DUPUYTREN'S CONTRACTURE
     Dosage: INTRALESIONAL
     Route: 026
     Dates: start: 20100712, end: 20100712
  2. LIDOCAINE [Suspect]
     Indication: ANAESTHESIA
     Dates: start: 20100713, end: 20100713

REACTIONS (2)
  - AXILLARY PAIN [None]
  - CONTUSION [None]
